FAERS Safety Report 5297503-7 (Version None)
Quarter: 2007Q2

REPORT INFORMATION
  Report Type: 
  Country: None (occurrence: None)
  Receive Date: 20070409
  Receipt Date: 20070326
  Transmission Date: 20071010
  Serious: Yes (Other)
  Sender: FDA-Public Use
  Company Number: GXKR2007FR02672

PATIENT
  Age: 77 Year
  Sex: Male
  Weight: 73 kg

DRUGS (2)
  1. AMOXICILLIN+CLAVULANATE (NGX)(AMOXICILLIN, CLAVULANATE) UNKNOWN [Suspect]
     Dosage: 1125 MG, BUCCAL
     Route: 002
  2. DIAMICRON (GLICLAZIDE) [Concomitant]

REACTIONS (1)
  - MYCOSIS FUNGOIDES [None]
